FAERS Safety Report 9895877 (Version 2)
Quarter: 2014Q1

REPORT INFORMATION
  Report Type: Spontaneous
  Country: US (occurrence: US)
  Receive Date: 20140213
  Receipt Date: 20140213
  Transmission Date: 20141002
  Serious: No
  Sender: FDA-Public Use
  Company Number: US-BRISTOL-MYERS SQUIBB COMPANY-17297920

PATIENT
  Age: 72 Year
  Sex: Female
  Weight: 63.49 kg

DRUGS (4)
  1. ABATACEPT SUBQ INJECTION 125MG/ML [Suspect]
     Indication: RHEUMATOID ARTHRITIS
     Route: 058
  2. NAPROXEN [Concomitant]
  3. SYNTHROID [Concomitant]
  4. NEXIUM [Concomitant]

REACTIONS (1)
  - Incorrect product storage [Unknown]
